FAERS Safety Report 20416260 (Version 1)
Quarter: 2022Q1

REPORT INFORMATION
  Report Type: Spontaneous
  Country: US (occurrence: None)
  Receive Date: 20220201
  Receipt Date: 20220201
  Transmission Date: 20220424
  Serious: No
  Sender: FDA-Public Use
  Company Number: None

PATIENT
  Age: 49 Year
  Sex: Male

DRUGS (1)
  1. AMBRISENTAN [Suspect]
     Active Substance: AMBRISENTAN
     Indication: Pulmonary arterial hypertension
     Dosage: FREQUENCY : DAILY;?
     Route: 048
     Dates: start: 20220124

REACTIONS (7)
  - Poisoning [None]
  - Disorientation [None]
  - Road traffic accident [None]
  - Patient uncooperative [None]
  - Agitation [None]
  - Drug withdrawal syndrome [None]
  - Therapy interrupted [None]

NARRATIVE: CASE EVENT DATE: 20220127
